FAERS Safety Report 6690994-6 (Version None)
Quarter: 2010Q2

REPORT INFORMATION
  Report Type: 
  Country: None (occurrence: None)
  Receive Date: 20100421
  Receipt Date: 20100413
  Transmission Date: 20101027
  Serious: Yes (Other)
  Sender: FDA-Public Use
  Company Number: US-AMGEN-QUU405741

PATIENT
  Sex: Male

DRUGS (3)
  1. NPLATE [Suspect]
     Indication: IDIOPATHIC THROMBOCYTOPENIC PURPURA
     Dates: start: 20100222
  2. CORTICOSTEROIDS [Concomitant]
     Dates: start: 20100208
  3. IMMU-G [Concomitant]
     Dates: start: 20100208

REACTIONS (2)
  - PERFORATED ULCER [None]
  - PLATELET COUNT DECREASED [None]
